FAERS Safety Report 5971908-0 (Version None)
Quarter: 2008Q4

REPORT INFORMATION
  Report Type: 
  Country: None (occurrence: None)
  Receive Date: 20081201
  Receipt Date: 20081121
  Transmission Date: 20090506
  Serious: Yes (Hospitalization)
  Sender: FDA-Public Use
  Company Number: US-BIOGENIDEC-2007BI019588

PATIENT
  Age: 41 Year
  Sex: Female
  Weight: 68 kg

DRUGS (1)
  1. AVONEX [Suspect]
     Indication: MULTIPLE SCLEROSIS
     Route: 030
     Dates: start: 20060821, end: 20070903

REACTIONS (6)
  - BENIGN VAGINAL NEOPLASM [None]
  - BONE MARROW DISORDER [None]
  - FATIGUE [None]
  - HAEMORRHAGE [None]
  - MULTIPLE SCLEROSIS RELAPSE [None]
  - RESPIRATORY ARREST [None]
